FAERS Safety Report 9322315 (Version 1)
Quarter: 2013Q2

REPORT INFORMATION
  Report Type: Spontaneous
  Country: US (occurrence: US)
  Receive Date: 20130531
  Receipt Date: 20130531
  Transmission Date: 20140414
  Serious: Yes (Other)
  Sender: FDA-Public Use
  Company Number: US-JNJFOC-20130404086

PATIENT
  Sex: Male
  Weight: 64.41 kg

DRUGS (22)
  1. XARELTO [Suspect]
     Indication: CEREBROVASCULAR ACCIDENT PROPHYLAXIS
     Route: 048
  2. XARELTO [Suspect]
     Indication: CEREBROVASCULAR ACCIDENT PROPHYLAXIS
     Route: 048
     Dates: start: 20130405
  3. XARELTO [Suspect]
     Indication: ATRIAL FIBRILLATION
     Route: 048
  4. XARELTO [Suspect]
     Indication: ATRIAL FIBRILLATION
     Route: 048
     Dates: start: 20130405
  5. BABY ASPIRIN [Suspect]
     Indication: PRODUCT USED FOR UNKNOWN INDICATION
     Route: 048
  6. ATENOLOL [Concomitant]
     Indication: BLOOD PRESSURE ABNORMAL
     Route: 048
     Dates: end: 20130429
  7. PAROXETINE [Concomitant]
     Indication: DEPRESSION
     Route: 065
  8. TORSEMIDE [Concomitant]
     Indication: DIURETIC THERAPY
     Route: 065
  9. AMLODIPINE [Concomitant]
     Indication: BLOOD PRESSURE ABNORMAL
     Route: 065
     Dates: end: 20130429
  10. OMEPRAZOLE [Concomitant]
     Indication: GASTROOESOPHAGEAL REFLUX DISEASE
     Route: 065
  11. ROSUVASTATIN [Concomitant]
     Indication: BLOOD CHOLESTEROL ABNORMAL
     Route: 065
  12. OXYCONTIN [Concomitant]
     Indication: PAIN
     Route: 065
  13. OXYCONTIN [Concomitant]
     Indication: PAIN
     Route: 065
  14. PRANDIN [Concomitant]
     Indication: TYPE 2 DIABETES MELLITUS
     Route: 065
  15. LEVEMIR [Concomitant]
     Indication: TYPE 2 DIABETES MELLITUS
     Route: 065
  16. CALCIUM AND VITAMIN D [Concomitant]
     Route: 065
  17. VITAMIN B [Concomitant]
     Route: 065
  18. GLUCOSAMINE [Concomitant]
     Route: 065
  19. METAMUCIL [Concomitant]
     Route: 065
  20. FOLIC ACID [Concomitant]
     Route: 065
  21. DOXAPRAM [Concomitant]
     Route: 065
  22. ECASA [Concomitant]
     Route: 065

REACTIONS (5)
  - Contusion [Recovering/Resolving]
  - Dyspnoea exertional [Unknown]
  - Blood blister [Not Recovered/Not Resolved]
  - Fatigue [Not Recovered/Not Resolved]
  - Ecchymosis [Unknown]
